FAERS Safety Report 7909896-X (Version None)
Quarter: 2011Q4

REPORT INFORMATION
  Report Type: 
  Country: None (occurrence: None)
  Receive Date: 20111111
  Receipt Date: 20111024
  Transmission Date: 20120403
  Serious: Yes (Hospitalization)
  Sender: FDA-Public Use
  Company Number: PL-ROCHE-1007087

PATIENT
  Age: 22 Year
  Sex: Female

DRUGS (4)
  1. RITUXIMAB [Suspect]
     Dosage: THIRD DOSE
  2. RITUXIMAB [Suspect]
     Dosage: SECOND DOSE
  3. RITUXIMAB [Suspect]
     Indication: IDIOPATHIC THROMBOCYTOPENIC PURPURA
     Route: 042
  4. RITUXIMAB [Suspect]
     Dosage: FOURTH DOSE
     Dates: start: 20110101

REACTIONS (2)
  - HAEMORRHAGIC DISORDER [None]
  - ANAEMIA [None]
